FAERS Safety Report 17836338 (Version 6)
Quarter: 2021Q3

REPORT INFORMATION
  Report Type: Report from Study
  Country: AU (occurrence: AU)
  Receive Date: 20200528
  Receipt Date: 20210901
  Transmission Date: 20211014
  Serious: Yes (Hospitalization, Other)
  Sender: FDA-Public Use
  Company Number: NVSC2020AU039376

PATIENT
  Age: 49 Year
  Sex: Male

DRUGS (1)
  1. COSENTYX [Suspect]
     Active Substance: SECUKINUMAB
     Indication: PSORIASIS
     Dosage: 300 MG, QMO
     Route: 058
     Dates: start: 20191219

REACTIONS (33)
  - General physical health deterioration [Unknown]
  - Food intolerance [Unknown]
  - Fungal infection [Not Recovered/Not Resolved]
  - Oral candidiasis [Recovered/Resolved]
  - Constipation [Unknown]
  - Stab wound [Unknown]
  - Inflammatory bowel disease [Unknown]
  - Nausea [Unknown]
  - Nail infection [Unknown]
  - Psoriasis [Unknown]
  - Swelling [Unknown]
  - Diarrhoea [Unknown]
  - Prostate infection [Unknown]
  - Traumatic shock [Unknown]
  - Feeling abnormal [Unknown]
  - Drug hypersensitivity [Unknown]
  - Prostatic specific antigen increased [Unknown]
  - Tongue discolouration [Recovered/Resolved]
  - Pharyngeal ulceration [Unknown]
  - Vomiting [Unknown]
  - Concomitant disease aggravated [Unknown]
  - Injection site pain [Unknown]
  - Arthralgia [Recovering/Resolving]
  - Abdominal pain upper [Unknown]
  - Gastritis [Unknown]
  - Pustule [Recovered/Resolved]
  - Crohn^s disease [Unknown]
  - Pain [Not Recovered/Not Resolved]
  - Onychomadesis [Unknown]
  - Arthritis [Recovering/Resolving]
  - Feeding disorder [Unknown]
  - Candida infection [Not Recovered/Not Resolved]
  - Oropharyngeal pain [Unknown]

NARRATIVE: CASE EVENT DATE: 202002
